FAERS Safety Report 7166257-1 (Version None)
Quarter: 2010Q4

REPORT INFORMATION
  Report Type: 
  Country: None (occurrence: None)
  Receive Date: 20101202
  Receipt Date: 20101123
  Transmission Date: 20110411
  Serious: Yes (Hospitalization)
  Sender: FDA-Public Use
  Company Number: DEP_00435_2010

PATIENT
  Age: 25 Year
  Sex: Male

DRUGS (3)
  1. METFORMIN HCL [Suspect]
     Indication: HYPERINSULINAEMIA
     Dosage: (500 MG TID)
     Dates: start: 20080601, end: 20080101
  2. AMISULPRIDE (AMISULPRIDE) [Suspect]
     Indication: MENTAL DISORDER
     Dosage: (200 MG, DF) ; (200 MG, DF)
     Dates: start: 20080101, end: 20080101
  3. AMISULPRIDE (AMISULPRIDE) [Suspect]
     Indication: MENTAL DISORDER
     Dosage: (200 MG, DF) ; (200 MG, DF)
     Dates: start: 20080101

REACTIONS (2)
  - DRUG INTERACTION [None]
  - RHABDOMYOLYSIS [None]
